FAERS Safety Report 19323838 (Version 3)
Quarter: 2021Q3

REPORT INFORMATION
  Report Type: Spontaneous
  Country: GB (occurrence: GB)
  Receive Date: 20210528
  Receipt Date: 20210914
  Transmission Date: 20211014
  Serious: Yes (Hospitalization, Other)
  Sender: FDA-Public Use
  Company Number: GB-JNJFOC-20210518276

PATIENT
  Age: 59 Year
  Sex: Male
  Weight: 62.45 kg

DRUGS (11)
  1. ALENDRONIC ACID [Concomitant]
     Active Substance: ALENDRONIC ACID
     Dates: start: 20210802
  2. EVACAL D3 [Concomitant]
     Dosage: 1500 MG/400 UNIT
  3. PREDNISOLONE. [Concomitant]
     Active Substance: PREDNISOLONE
  4. SALOFALK [AMINOSALICYLIC ACID] [Concomitant]
     Active Substance: AMINOSALICYLIC ACID
     Dosage: DAILY AS REQUIRED
  5. SIMPONI [Suspect]
     Active Substance: GOLIMUMAB
     Indication: COLITIS ULCERATIVE
     Route: 058
  6. OMEPRAZOLE. [Concomitant]
     Active Substance: OMEPRAZOLE
  7. SYMBICORT [Concomitant]
     Active Substance: BUDESONIDE\FORMOTEROL FUMARATE DIHYDRATE
     Dosage: ONE PUFF TO BE INHALED TWICE A DAY
  8. COLESEVELAM [Concomitant]
     Active Substance: COLESEVELAM
  9. MESALAZINE [Concomitant]
     Active Substance: MESALAMINE
     Dates: start: 20210802
  10. SALBUTAMOL [Concomitant]
     Active Substance: ALBUTEROL
     Dosage: 100 MICROGRAMS/DOSE INHALER. ONE OR TWO PUFFS TO BE INHALED UP TO FOUR TIMES A DAY
  11. DEXAMETHASONE. [Concomitant]
     Active Substance: DEXAMETHASONE
     Dates: start: 20210812

REACTIONS (2)
  - Colitis ulcerative [Recovered/Resolved]
  - Colectomy [Recovered/Resolved]

NARRATIVE: CASE EVENT DATE: 20210512
